FAERS Safety Report 21973954 (Version 1)
Quarter: 2023Q1

REPORT INFORMATION
  Report Type: Report from Study
  Country: US (occurrence: US)
  Receive Date: 20230209
  Receipt Date: 20230209
  Transmission Date: 20230417
  Serious: Yes (Other)
  Sender: FDA-Public Use
  Company Number: US-Ipsen Biopharmaceuticals, Inc.-2023-02398

PATIENT
  Age: 61 Year
  Sex: Male

DRUGS (2)
  1. SOMATULINE DEPOT [Suspect]
     Active Substance: LANREOTIDE ACETATE
     Indication: Neuroendocrine tumour
     Route: 058
  2. SUTENT [Concomitant]
     Active Substance: SUNITINIB MALATE

REACTIONS (10)
  - Feeling abnormal [Unknown]
  - Diverticulitis [Unknown]
  - Wrong technique in product usage process [Unknown]
  - Injection site nodule [Unknown]
  - Hepatic embolisation [Unknown]
  - Solar lentigo [Unknown]
  - Abdominal distension [Unknown]
  - Abdominal distension [Unknown]
  - Emergency care [Unknown]
  - Flatulence [Unknown]
